FAERS Safety Report 19197020 (Version 1)
Quarter: 2021Q2

REPORT INFORMATION
  Report Type: Spontaneous
  Country: US (occurrence: US)
  Receive Date: 20210430
  Receipt Date: 20210430
  Transmission Date: 20210717
  Serious: No
  Sender: FDA-Public Use
  Company Number: US-BIOGEN-2020BI00948639

PATIENT
  Sex: Female

DRUGS (1)
  1. TECFIDERA [Suspect]
     Active Substance: DIMETHYL FUMARATE
     Indication: MULTIPLE SCLEROSIS
     Route: 065

REACTIONS (6)
  - Drug ineffective [Unknown]
  - Visual impairment [Unknown]
  - Muscular weakness [Unknown]
  - Muscle fatigue [Unknown]
  - Fatigue [Unknown]
  - Ataxia [Unknown]
